FAERS Safety Report 9765225 (Version 1)
Quarter: 2013Q4

REPORT INFORMATION
  Report Type: Spontaneous
  Country: US (occurrence: US)
  Receive Date: 20131217
  Receipt Date: 20131217
  Transmission Date: 20140711
  Serious: No
  Sender: FDA-Public Use
  Company Number: US-GLAXOSMITHKLINE-A1002755A

PATIENT
  Age: 64 Year
  Sex: Female

DRUGS (9)
  1. VOTRIENT [Suspect]
     Indication: RENAL CANCER METASTATIC
     Dosage: 800MG PER DAY
     Route: 048
     Dates: start: 20121113
  2. INSULIN [Concomitant]
  3. ASPIRIN [Concomitant]
  4. VITAMIN D [Concomitant]
  5. HYDROCHLOROTHIAZIDE [Concomitant]
  6. PRAVASTATIN [Concomitant]
  7. GLIPIZIDE [Concomitant]
  8. AMLODIPINE + BENAZEPRIL [Concomitant]
  9. CARVEDILOL [Concomitant]

REACTIONS (1)
  - Nausea [Recovered/Resolved]
